FAERS Safety Report 5221260-3 (Version None)
Quarter: 2007Q1

REPORT INFORMATION
  Report Type: 
  Country: None (occurrence: None)
  Receive Date: 20070126
  Receipt Date: 20070115
  Transmission Date: 20070707
  Serious: Yes (Life-Threatening, Hospitalization, Disabling)
  Sender: FDA-Public Use
  Company Number: GB-ROCHE-461767

PATIENT
  Age: 64 Year
  Sex: Female
  Weight: 65 kg

DRUGS (7)
  1. NAPROXEN [Suspect]
     Route: 048
     Dates: start: 20051004
  2. AMOXICILLIN [Suspect]
     Indication: LOWER RESPIRATORY TRACT INFECTION
     Route: 048
     Dates: start: 20060508, end: 20060512
  3. ADCAL D3 [Concomitant]
     Indication: OSTEOPOROSIS PROPHYLAXIS
     Route: 048
     Dates: start: 20050330, end: 20060524
  4. BUMETANIDE [Concomitant]
     Indication: OEDEMA
     Route: 048
     Dates: start: 20051004, end: 20060524
  5. CO-CODAMOL [Concomitant]
     Route: 048
     Dates: start: 20050301, end: 20060516
  6. KLIOVANCE [Concomitant]
     Indication: HORMONE REPLACEMENT THERAPY
     Route: 048
     Dates: start: 20050331, end: 20060518
  7. IBUPROFEN [Suspect]
     Indication: DRUG USE FOR UNKNOWN INDICATION
     Route: 065

REACTIONS (6)
  - DRUG EFFECT DECREASED [None]
  - ENCEPHALITIS [None]
  - HEPATIC NECROSIS [None]
  - JAUNDICE [None]
  - LIVER FUNCTION TEST ABNORMAL [None]
  - LIVER TRANSPLANT [None]
